FAERS Safety Report 12355045 (Version 1)
Quarter: 2016Q2

REPORT INFORMATION
  Report Type: Spontaneous
  Country: US (occurrence: US)
  Receive Date: 20160511
  Receipt Date: 20160511
  Transmission Date: 20160815
  Serious: No
  Sender: FDA-Public Use
  Company Number: US-ACTAVIS-2015-16646

PATIENT
  Age: 51 Year
  Sex: Female
  Weight: 127 kg

DRUGS (1)
  1. IBUPROFEN OTC BERRY (AMALLC) [Suspect]
     Active Substance: IBUPROFEN
     Indication: PRODUCT USED FOR UNKNOWN INDICATION
     Dosage: UNK, SINGLE
     Route: 048
     Dates: start: 20150805, end: 20150805

REACTIONS (2)
  - Glossodynia [Unknown]
  - Throat irritation [Unknown]

NARRATIVE: CASE EVENT DATE: 20150805
